FAERS Safety Report 7689211-X (Version None)
Quarter: 2011Q3

REPORT INFORMATION
  Report Type: 
  Country: None (occurrence: None)
  Receive Date: 20110811
  Receipt Date: 20110729
  Transmission Date: 20111222
  Serious: Yes (Hospitalization, Other)
  Sender: FDA-Public Use
  Company Number: 2011MA010756

PATIENT
  Age: 78 Year
  Sex: Female

DRUGS (35)
  1. TOPROL-XL [Concomitant]
  2. WARFARIN SODIUM [Concomitant]
  3. LASIX [Concomitant]
  4. ENALAPRIL MALEATE [Concomitant]
  5. RISPERIDONE [Concomitant]
  6. XANAX [Concomitant]
  7. NITROGLYCERIN COMP. [Concomitant]
  8. FIORICET [Concomitant]
  9. DARVON-N COMPOUND [Concomitant]
  10. AEROBID [Concomitant]
  11. POTASSIUM [Concomitant]
  12. OXYGEN [Concomitant]
  13. ASPIRIN [Concomitant]
  14. DIGOXIN [Suspect]
     Dosage: .125 MG; QD;
     Dates: start: 20011003, end: 20090218
  15. EFFEXOR XR [Concomitant]
  16. BENICAR [Concomitant]
  17. FOSAMAX [Concomitant]
  18. MIRALAX [Concomitant]
  19. PREVACID [Concomitant]
  20. PLAVIX [Concomitant]
  21. COMBIVENT [Concomitant]
  22. CELEBREX [Concomitant]
  23. PLENDIL [Concomitant]
  24. LORTAB [Concomitant]
  25. LIPITOR [Concomitant]
  26. ANZEMET [Concomitant]
  27. FLONASE [Concomitant]
  28. CARDIZEM [Concomitant]
  29. LEVSINEX [Concomitant]
  30. ZOLOFT [Concomitant]
  31. ALBUTEROL SULFATE AUTOHALER [Concomitant]
  32. QUININE SULFATE [Concomitant]
  33. METOPROLOL [Concomitant]
  34. FEMTANYL [Concomitant]
  35. ATROVENT [Concomitant]

REACTIONS (100)
  - RENAL IMPAIRMENT [None]
  - BLOOD PRESSURE ABNORMAL [None]
  - HYPOTENSION [None]
  - ATELECTASIS [None]
  - ANGINA PECTORIS [None]
  - CARDIAC FAILURE CONGESTIVE [None]
  - PULMONARY HYPERTENSION [None]
  - COMMINUTED FRACTURE [None]
  - COAGULOPATHY [None]
  - INTERVERTEBRAL DISC DEGENERATION [None]
  - PERIPHERAL VASCULAR DISORDER [None]
  - ECONOMIC PROBLEM [None]
  - ATRIAL FIBRILLATION [None]
  - CONJUNCTIVITIS [None]
  - CEREBROVASCULAR ACCIDENT [None]
  - VENTRICULAR EXTRASYSTOLES [None]
  - EMPHYSEMA [None]
  - WRIST FRACTURE [None]
  - GASTROOESOPHAGEAL REFLUX DISEASE [None]
  - TOXICITY TO VARIOUS AGENTS [None]
  - HAEMATOCRIT DECREASED [None]
  - UPPER RESPIRATORY TRACT INFECTION [None]
  - DELIRIUM [None]
  - ARTERIAL OCCLUSIVE DISEASE [None]
  - LEFT VENTRICULAR HYPERTROPHY [None]
  - PERIPHERAL EMBOLISM [None]
  - INJURY [None]
  - NAUSEA [None]
  - BLOOD PRESSURE INCREASED [None]
  - CONFUSIONAL STATE [None]
  - HYPOKALAEMIA [None]
  - ELECTROCARDIOGRAM ST-T SEGMENT ABNORMAL [None]
  - DEPRESSION [None]
  - HIP FRACTURE [None]
  - INTERNATIONAL NORMALISED RATIO INCREASED [None]
  - SPINAL OSTEOARTHRITIS [None]
  - JOINT DISLOCATION [None]
  - ANGIOPATHY [None]
  - CHEST PAIN [None]
  - ABDOMINAL PAIN [None]
  - DYSPNOEA [None]
  - CHEST DISCOMFORT [None]
  - ATAXIA [None]
  - ANXIETY [None]
  - HYPERLIPIDAEMIA [None]
  - HEADACHE [None]
  - MITRAL VALVE INCOMPETENCE [None]
  - TRICUSPID VALVE INCOMPETENCE [None]
  - ARTHRALGIA [None]
  - FAECES DISCOLOURED [None]
  - DYSPHAGIA [None]
  - SUBCUTANEOUS HAEMATOMA [None]
  - PNEUMONITIS [None]
  - INTERVERTEBRAL DISC PROTRUSION [None]
  - DECREASED APPETITE [None]
  - ILIAC ARTERY STENOSIS [None]
  - MOBILITY DECREASED [None]
  - MYOCARDIAL INFARCTION [None]
  - EJECTION FRACTION DECREASED [None]
  - BLOOD TRIGLYCERIDES INCREASED [None]
  - HAEMOGLOBIN DECREASED [None]
  - BRONCHITIS [None]
  - FALL [None]
  - CHRONIC OBSTRUCTIVE PULMONARY DISEASE [None]
  - HYPERTENSION [None]
  - PYREXIA [None]
  - OROPHARYNGEAL PAIN [None]
  - CONTUSION [None]
  - PHARYNGEAL HAEMATOMA [None]
  - CHILLS [None]
  - MITRAL VALVE DISEASE [None]
  - WEIGHT DECREASED [None]
  - JOINT INJURY [None]
  - SYNCOPE [None]
  - TREATMENT NONCOMPLIANCE [None]
  - BACK PAIN [None]
  - MUSCULOSKELETAL CHEST PAIN [None]
  - PAIN [None]
  - DEEP VEIN THROMBOSIS [None]
  - SICK SINUS SYNDROME [None]
  - ASTHENIA [None]
  - UNRESPONSIVE TO STIMULI [None]
  - CONDITION AGGRAVATED [None]
  - AORTIC VALVE CALCIFICATION [None]
  - ATRIAL FLUTTER [None]
  - CEREBRAL SMALL VESSEL ISCHAEMIC DISEASE [None]
  - DRUG INTOLERANCE [None]
  - HYPERKALAEMIA [None]
  - AORTIC VALVE DISEASE [None]
  - DEMENTIA ALZHEIMER'S TYPE [None]
  - CORONARY ARTERY DISEASE [None]
  - REFUSAL OF TREATMENT BY PATIENT [None]
  - VISION BLURRED [None]
  - ORTHOSTATIC HYPOTENSION [None]
  - PNEUMONIA [None]
  - QRS AXIS ABNORMAL [None]
  - CARDIOMEGALY [None]
  - DISEASE PROGRESSION [None]
  - MULTIPLE INJURIES [None]
  - RESPIRATORY TRACT HAEMORRHAGE [None]
